FAERS Safety Report 14267969 (Version 1)
Quarter: 2017Q4

REPORT INFORMATION
  Report Type: Spontaneous
  Country: US (occurrence: None)
  Receive Date: 20171211
  Receipt Date: 20171211
  Transmission Date: 20180321
  Serious: Yes (Life-Threatening, Hospitalization)
  Sender: FDA-Public Use
  Company Number: None

PATIENT
  Age: 2 Year
  Sex: Male
  Weight: 17 kg

DRUGS (1)
  1. BUPRENORPHINE/NALOXONE [Suspect]
     Active Substance: BUPRENORPHINE\NALOXONE
     Indication: DRUG DEPENDENCE
     Dosage: CHILD GOT 16 MG BUP/2 MG NALOX, ONCE, ORAL
     Route: 048

REACTIONS (4)
  - Respiratory rate decreased [None]
  - Unresponsive to stimuli [None]
  - Accidental exposure to product by child [None]
  - Coma [None]

NARRATIVE: CASE EVENT DATE: 20171126
